FAERS Safety Report 13617967 (Version 1)
Quarter: 2017Q2

REPORT INFORMATION
  Report Type: Spontaneous
  Country: IT (occurrence: IT)
  Receive Date: 20170606
  Receipt Date: 20170606
  Transmission Date: 20170830
  Serious: Yes (Hospitalization)
  Sender: FDA-Public Use
  Company Number: IT-SA-2017SA100782

PATIENT
  Sex: Male

DRUGS (9)
  1. SOLOSA [Suspect]
     Active Substance: GLIMEPIRIDE
     Indication: DIABETES MELLITUS
     Route: 048
     Dates: start: 20170224, end: 20170226
  2. LASIX [Concomitant]
     Active Substance: FUROSEMIDE
     Dosage: STRENGTH: 500MG
     Route: 065
  3. CARDICOR [Concomitant]
     Active Substance: BISOPROLOL
     Dosage: STRENGTH: 1.25 MG
     Route: 065
  4. OXYCONTIN [Concomitant]
     Active Substance: OXYCODONE HYDROCHLORIDE
  5. CLEXANE [Concomitant]
     Active Substance: ENOXAPARIN SODIUM
     Dosage: 4000 IU AXA / 0.4 ML INJECTABLE SOLUTION 6 SYRINGES PREFILLED 0.4 ML WITH SECURITY SYSTEM
  6. ENANTONE LP [Concomitant]
     Active Substance: LEUPROLIDE ACETATE
     Route: 065
  7. LASIX [Concomitant]
     Active Substance: FUROSEMIDE
     Dosage: STRENGTH: 500MG
     Route: 065
  8. DELTACORTENE [Concomitant]
     Active Substance: PREDNISONE
     Dosage: 5MG TAB
     Route: 065
  9. DEPALGOS [Concomitant]
     Active Substance: ACETAMINOPHEN\OXYCODONE HYDROCHLORIDE

REACTIONS (3)
  - Dyspnoea [Unknown]
  - Hypoglycaemia [Unknown]
  - Aphasia [Unknown]

NARRATIVE: CASE EVENT DATE: 20170226
